FAERS Safety Report 23135462 (Version 2)
Quarter: 2023Q4

REPORT INFORMATION
  Report Type: Spontaneous
  Country: US (occurrence: US)
  Receive Date: 20231101
  Receipt Date: 20231113
  Transmission Date: 20240110
  Serious: Yes (Life-Threatening, Hospitalization)
  Sender: FDA-Public Use
  Company Number: US-TEVA-2023-US-2940204

PATIENT
  Age: 26 Year
  Sex: Female

DRUGS (2)
  1. NALOXONE [Suspect]
     Active Substance: NALOXONE
     Indication: Toxicity to various agents
     Route: 065
  2. VALPROATE SODIUM [Suspect]
     Active Substance: VALPROATE SODIUM
     Indication: Suicide attempt
     Dosage: 15 TABLETS OF SODIUM VALPROATE 250MG
     Route: 065

REACTIONS (15)
  - Toxicity to various agents [Recovering/Resolving]
  - Rhabdomyolysis [Recovering/Resolving]
  - Mental status changes [Recovering/Resolving]
  - Tremor [Recovering/Resolving]
  - Tachypnoea [Recovering/Resolving]
  - Hypocalcaemia [Recovering/Resolving]
  - Hypernatraemia [Recovering/Resolving]
  - Drug level increased [Recovering/Resolving]
  - Hyperammonaemia [Recovering/Resolving]
  - Hypotension [Recovering/Resolving]
  - Metabolic acidosis [Recovering/Resolving]
  - Blood creatine phosphokinase increased [Recovering/Resolving]
  - Electrocardiogram QT prolonged [Recovering/Resolving]
  - Intentional overdose [Unknown]
  - Drug ineffective [Unknown]
